FAERS Safety Report 21782607 (Version 1)
Quarter: 2022Q4

REPORT INFORMATION
  Report Type: Other
  Country: US (occurrence: None)
  Receive Date: 20221227
  Receipt Date: 20221227
  Transmission Date: 20230113
  Serious: Yes (Hospitalization)
  Sender: FDA-Public Use
  Company Number: US-DEXPHARM-20222695

PATIENT
  Age: 50 Year
  Sex: Male

DRUGS (4)
  1. LISINOPRIL [Concomitant]
     Active Substance: LISINOPRIL
  2. HYDROCHLOROTHIAZIDE [Concomitant]
     Active Substance: HYDROCHLOROTHIAZIDE
  3. OMEPRAZOLE [Concomitant]
     Active Substance: OMEPRAZOLE
  4. DICLOFENAC [Suspect]
     Active Substance: DICLOFENAC
     Indication: Arthralgia
     Dosage: DICLOFENAC 100 MG DAILY FOR OVER 8 MONTHS

REACTIONS (2)
  - Glomerulonephritis membranous [Recovering/Resolving]
  - Nephrotic syndrome [Recovering/Resolving]
